FAERS Safety Report 6323395-0 (Version None)
Quarter: 2009Q3

REPORT INFORMATION
  Report Type: 
  Country: None (occurrence: None)
  Receive Date: 20090824
  Receipt Date: 20090403
  Transmission Date: 20100115
  Serious: No
  Sender: FDA-Public Use
  Company Number: US-ABBOTT-09P-163-0566497-00

PATIENT
  Sex: Male

DRUGS (12)
  1. NIASPAN [Suspect]
     Indication: HIGH DENSITY LIPOPROTEIN DECREASED
     Dosage: 500MG AT BEDTIME
     Dates: start: 20090327, end: 20090330
  2. METFORMIN HCL [Concomitant]
     Indication: DRUG USE FOR UNKNOWN INDICATION
  3. HALDOL [Concomitant]
     Indication: DRUG USE FOR UNKNOWN INDICATION
  4. BUSPAR [Concomitant]
     Indication: DRUG USE FOR UNKNOWN INDICATION
  5. COGENTIN [Concomitant]
     Indication: DRUG USE FOR UNKNOWN INDICATION
  6. DEPAKOTE [Concomitant]
     Indication: DRUG USE FOR UNKNOWN INDICATION
  7. LOPID [Concomitant]
     Indication: DRUG USE FOR UNKNOWN INDICATION
  8. CARAFATE [Concomitant]
     Indication: DRUG USE FOR UNKNOWN INDICATION
  9. FLONASE [Concomitant]
     Indication: DRUG USE FOR UNKNOWN INDICATION
  10. VENTOLIN [Concomitant]
     Indication: DRUG USE FOR UNKNOWN INDICATION
  11. PRILOSEC [Concomitant]
     Indication: DRUG USE FOR UNKNOWN INDICATION
  12. ADVAIR HFA [Concomitant]
     Indication: DRUG USE FOR UNKNOWN INDICATION

REACTIONS (3)
  - DRUG HYPERSENSITIVITY [None]
  - FLUSHING [None]
  - URTICARIA [None]
